FAERS Safety Report 21393583 (Version 6)
Quarter: 2023Q1

REPORT INFORMATION
  Report Type: Spontaneous
  Country: US (occurrence: US)
  Receive Date: 20220929
  Receipt Date: 20230214
  Transmission Date: 20230417
  Serious: Yes (Other)
  Sender: FDA-Public Use
  Company Number: US-Blueprint Medicines Corporation-SP-US-2022-002885

PATIENT
  Age: 78 Year
  Sex: Male

DRUGS (6)
  1. AYVAKIT [Suspect]
     Active Substance: AVAPRITINIB
     Indication: Systemic mastocytosis
     Route: 048
     Dates: start: 20210722
  2. AYVAKIT [Suspect]
     Active Substance: AVAPRITINIB
     Route: 065
     Dates: start: 20210805
  3. AYVAKIT [Suspect]
     Active Substance: AVAPRITINIB
     Route: 065
     Dates: start: 20210805
  4. AYVAKIT [Suspect]
     Active Substance: AVAPRITINIB
     Route: 048
     Dates: start: 20210908
  5. AYVAKIT [Suspect]
     Active Substance: AVAPRITINIB
     Route: 048
     Dates: start: 20210722
  6. VIDAZA [Suspect]
     Active Substance: AZACITIDINE
     Indication: Product used for unknown indication
     Route: 065

REACTIONS (15)
  - Iron deficiency [Not Recovered/Not Resolved]
  - Limb discomfort [Not Recovered/Not Resolved]
  - Ageusia [Not Recovered/Not Resolved]
  - Malaise [Not Recovered/Not Resolved]
  - Platelet count decreased [Recovering/Resolving]
  - Nausea [Not Recovered/Not Resolved]
  - Haemoglobin abnormal [Not Recovered/Not Resolved]
  - Fatigue [Not Recovered/Not Resolved]
  - Decreased appetite [Not Recovered/Not Resolved]
  - White blood cell count decreased [Recovering/Resolving]
  - Anaemia [Not Recovered/Not Resolved]
  - Iron metabolism disorder [Not Recovered/Not Resolved]
  - Tryptase increased [Not Recovered/Not Resolved]
  - Abdominal discomfort [Unknown]
  - Adverse event [Not Recovered/Not Resolved]

NARRATIVE: CASE EVENT DATE: 20210805
